FAERS Safety Report 16442082 (Version 1)
Quarter: 2019Q2

REPORT INFORMATION
  Report Type: Report from Study
  Country: None (occurrence: US)
  Receive Date: 20190617
  Receipt Date: 20190617
  Transmission Date: 20190711
  Serious: No
  Sender: FDA-Public Use
  Company Number: US-US WORLDMEDS, LLC-USW201812-001904

PATIENT
  Age: 57 Year
  Sex: Male
  Weight: 81.64 kg

DRUGS (7)
  1. APOKYN [Suspect]
     Active Substance: APOMORPHINE HYDROCHLORIDE
     Indication: ANGER
     Route: 058
     Dates: start: 20181108
  2. ROBINUL [Concomitant]
     Active Substance: GLYCOPYRROLATE
  3. DESVENLAFAXINES [Concomitant]
  4. RYTARY [Concomitant]
     Active Substance: CARBIDOPA\LEVODOPA
  5. KLONOPIN [Concomitant]
     Active Substance: CLONAZEPAM
  6. PRAMIPEXOLE. [Concomitant]
     Active Substance: PRAMIPEXOLE
  7. RASAGILINE. [Concomitant]
     Active Substance: RASAGILINE

REACTIONS (2)
  - Anger [Recovered/Resolved]
  - Agitation [Recovered/Resolved]

NARRATIVE: CASE EVENT DATE: 20181018
